FAERS Safety Report 4747487-2 (Version None)
Quarter: 2005Q3

REPORT INFORMATION
  Report Type: 
  Country: None (occurrence: None)
  Receive Date: 20050815
  Receipt Date: 20050629
  Transmission Date: 20060218
  Serious: No
  Sender: FDA-Public Use
  Company Number: USA0506101582

PATIENT
  Age: 65 Year
  Sex: Male

DRUGS (5)
  1. CIALIS [Suspect]
     Indication: ERECTILE DYSFUNCTION
     Dosage: 20 MG
     Dates: start: 20050201
  2. ZYRTEC [Concomitant]
  3. LISINOPRIL (LISINOPRIL) /000894001/) [Concomitant]
  4. PREVACID [Concomitant]
  5. AVODART /USA/ (DUTASTERIDE) [Concomitant]

REACTIONS (1)
  - CHEST PAIN [None]
